FAERS Safety Report 7875732-3 (Version None)
Quarter: 2011Q4

REPORT INFORMATION
  Report Type: 
  Country: None (occurrence: None)
  Receive Date: 20111031
  Receipt Date: 20111021
  Transmission Date: 20120403
  Serious: Yes (Death, Hospitalization)
  Sender: FDA-Public Use
  Company Number: US-BAYER-2011-052497

PATIENT
  Age: 23 Year
  Sex: Female
  Weight: 136 kg

DRUGS (24)
  1. YAZ [Suspect]
     Indication: PREMENSTRUAL SYNDROME
  2. CLONIDINE [Concomitant]
  3. YAZ [Suspect]
     Indication: ACNE
     Dosage: UNK
     Dates: start: 20090101
  4. CALCIUM CARBONATE [Concomitant]
  5. IBUPROFEN [Concomitant]
  6. TRI-SPRINTEC [Concomitant]
  7. OMEPRAZOLE [Concomitant]
  8. HUMALOG [Concomitant]
  9. LEXAPRO [Concomitant]
  10. FUROSEMIDE [Concomitant]
  11. XANAX [Concomitant]
  12. LYRICA [Concomitant]
     Indication: NEUROPATHY PERIPHERAL
  13. LORATADINE [Concomitant]
  14. SEROQUEL [Concomitant]
  15. CYMBALTA [Concomitant]
  16. FLUCONAZOLE [Concomitant]
     Indication: FUNGAL CYSTITIS
  17. MINI-PILL [Concomitant]
  18. METFORMIN HCL [Concomitant]
  19. GABAPENTIN [Concomitant]
  20. ACETAMINOPHEN [Concomitant]
  21. LANTUS [Concomitant]
     Indication: DIABETES MELLITUS
  22. MORPHINE [Concomitant]
     Indication: PAIN
  23. CAMILA [Concomitant]
  24. GEODON [Concomitant]

REACTIONS (3)
  - PULMONARY EMBOLISM [None]
  - DEEP VEIN THROMBOSIS [None]
  - PAIN [None]
